FAERS Safety Report 9452803 (Version 1)
Quarter: 2013Q3

REPORT INFORMATION
  Report Type: Report from Study
  Country: US (occurrence: US)
  Receive Date: 20130812
  Receipt Date: 20130812
  Transmission Date: 20140515
  Serious: Yes (Death)
  Sender: FDA-Public Use
  Company Number: PHEH2013US016975

PATIENT
  Age: 22 Year
  Sex: Male

DRUGS (1)
  1. TOBI [Suspect]
     Dosage: 1 DF, BID
     Dates: start: 20130306, end: 20130507

REACTIONS (1)
  - Death [Fatal]
